FAERS Safety Report 4607112-8 (Version None)
Quarter: 2005Q1

REPORT INFORMATION
  Report Type: 
  Country: None (occurrence: None)
  Receive Date: 20050310
  Receipt Date: 20050225
  Transmission Date: 20050727
  Serious: Yes (Hospitalization, Other)
  Sender: FDA-Public Use
  Company Number: USA-2004-0014916

PATIENT
  Age: 56 Year
  Sex: Female
  Weight: 56.7 kg

DRUGS (18)
  1. OXYCONTIN TABLETS (OXCODONE HYDROCHLORIDE) CR TABLET [Suspect]
     Indication: PAIN
     Dosage: 30 MG, TID, ORAL
     Route: 048
  2. OXYCODONE HCL [Concomitant]
  3. KLONOPIN [Concomitant]
  4. TRAZODONE (TRAZODONE) [Concomitant]
  5. CELEXA [Concomitant]
  6. PREMARIN [Concomitant]
  7. SYNTHROID [Concomitant]
  8. MULTIVITAMINS (PANTHENOL, NICOTINAMIDE, RIBOFLAVIN, THIAMINE HYDROCHLO [Concomitant]
  9. CALCIUM CARBONATE (CALCIUM CARBONATE) [Concomitant]
  10. LIPITOR [Concomitant]
  11. TYLENOL (CAPLET) [Concomitant]
  12. MIDRIN (DICHLORALPHENAZONE, ISOMETHEPTENE) [Concomitant]
  13. ZOLOFT [Concomitant]
  14. PEPCID [Concomitant]
  15. EFFEXOR [Concomitant]
  16. BUSPAR [Concomitant]
  17. RISPERAL (RISPERIDONE) [Concomitant]
  18. HYDROCHLOROTHIAZIDE [Concomitant]

REACTIONS (38)
  - ANHEDONIA [None]
  - ANXIETY [None]
  - ARTHRITIS [None]
  - ASTHENIA [None]
  - BURSITIS [None]
  - CHEST DISCOMFORT [None]
  - CONFUSIONAL STATE [None]
  - DECREASED APPETITE [None]
  - DELUSIONAL DISORDER, UNSPECIFIED TYPE [None]
  - DEPRESSED MOOD [None]
  - DEPRESSION [None]
  - DIARRHOEA [None]
  - DISTURBANCE IN ATTENTION [None]
  - DRUG DEPENDENCE [None]
  - DRUG WITHDRAWAL SYNDROME [None]
  - DYSPEPSIA [None]
  - DYSPHORIA [None]
  - DYSURIA [None]
  - FEELING GUILTY [None]
  - FEELINGS OF WORTHLESSNESS [None]
  - FLANK PAIN [None]
  - FLAT AFFECT [None]
  - HEADACHE [None]
  - HYPERSOMNIA [None]
  - IRRITABILITY [None]
  - MEDICATION ERROR [None]
  - MUSCULOSKELETAL STIFFNESS [None]
  - OBSESSIVE-COMPULSIVE DISORDER [None]
  - PAIN [None]
  - PARANOIA [None]
  - POLLAKIURIA [None]
  - POST-TRAUMATIC STRESS DISORDER [None]
  - PSYCHIATRIC SYMPTOM [None]
  - PSYCHOMOTOR SKILLS IMPAIRED [None]
  - SELF MUTILATION [None]
  - SUICIDAL IDEATION [None]
  - VAGINAL PAIN [None]
  - WEIGHT DECREASED [None]
